FAERS Safety Report 7271312-1 (Version None)
Quarter: 2011Q1

REPORT INFORMATION
  Report Type: 
  Country: None (occurrence: None)
  Receive Date: 20110203
  Receipt Date: 20110127
  Transmission Date: 20110831
  Serious: Yes (Disabling, Other)
  Sender: FDA-Public Use
  Company Number: GB-AMGEN-GBRSP2011005868

PATIENT
  Age: 78 Year
  Sex: Male

DRUGS (7)
  1. ENBREL [Suspect]
     Indication: RHEUMATOID ARTHRITIS
     Dosage: 25 MG, 2X/WEEK
     Route: 058
  2. PROPRANOLOL [Concomitant]
     Dosage: UNK
  3. FERROUS SULFATE TAB [Concomitant]
     Dosage: UNK
  4. PREDNISOLONE [Concomitant]
     Dosage: UNK
  5. ALENDRONATE SODIUM [Concomitant]
     Dosage: UNK
  6. CASODEX [Concomitant]
     Dosage: UNK
  7. OMEPRAZOLE [Concomitant]
     Dosage: UNK

REACTIONS (3)
  - RECTAL LESION [None]
  - PROSTATE CANCER [None]
  - TOOTH INFECTION [None]
